FAERS Safety Report 24760550 (Version 2)
Quarter: 2025Q3

REPORT INFORMATION
  Report Type: Spontaneous
  Country: US (occurrence: US)
  Receive Date: 20241220
  Receipt Date: 20250812
  Transmission Date: 20251020
  Serious: Yes (Other)
  Sender: COOPERSURGICAL
  Company Number: US-COOPERSURGICAL, INC.-2024CPS004038

PATIENT
  Age: 43 Year
  Sex: Female
  Weight: 93.878 kg

DRUGS (1)
  1. PARAGARD T 380A [Suspect]
     Active Substance: COPPER
     Indication: Contraception
     Route: 015
     Dates: start: 20150720

REACTIONS (15)
  - Uterine polyp [Recovered/Resolved]
  - Polypectomy [Recovered/Resolved]
  - Device breakage [Not Recovered/Not Resolved]
  - Foreign body in reproductive tract [Not Recovered/Not Resolved]
  - Complication of device removal [Not Recovered/Not Resolved]
  - Embedded device [Not Recovered/Not Resolved]
  - Anxiety [Unknown]
  - Obesity [Unknown]
  - Depression [Unknown]
  - Migraine [Unknown]
  - Hypertension [Unknown]
  - Endometrial thickening [Unknown]
  - Procedural pain [Recovered/Resolved]
  - Pain [Not Recovered/Not Resolved]
  - Device dislocation [Not Recovered/Not Resolved]

NARRATIVE: CASE EVENT DATE: 20180601
